FAERS Safety Report 7184993-8 (Version None)
Quarter: 2010Q4

REPORT INFORMATION
  Report Type: 
  Country: None (occurrence: None)
  Receive Date: 20101222
  Receipt Date: 20101214
  Transmission Date: 20110411
  Serious: Yes (Hospitalization, Disabling)
  Sender: FDA-Public Use
  Company Number: US-MERCK-0910USA01144

PATIENT
  Age: 49 Year
  Sex: Female
  Weight: 107 kg

DRUGS (4)
  1. FOSAMAX [Suspect]
     Indication: OSTEOPOROSIS
     Route: 048
     Dates: start: 20030101, end: 20060601
  2. FOSAMAX [Suspect]
     Indication: OSTEOPENIA
     Route: 048
     Dates: start: 20030101, end: 20060601
  3. ARMOUR THYROID TABLETS [Concomitant]
     Route: 065
  4. DIOVAN [Concomitant]
     Route: 065

REACTIONS (34)
  - ABDOMINAL DISCOMFORT [None]
  - ARTHRITIS [None]
  - ASTHMA [None]
  - BONE DENSITY DECREASED [None]
  - C-REACTIVE PROTEIN INCREASED [None]
  - CARDIOVASCULAR DISORDER [None]
  - CHOLELITHIASIS [None]
  - DERMATITIS ALLERGIC [None]
  - DISABILITY [None]
  - DRUG TOXICITY [None]
  - DYSPHAGIA [None]
  - DYSPHONIA [None]
  - EXCORIATION [None]
  - FACIAL PAIN [None]
  - GINGIVITIS [None]
  - HEADACHE [None]
  - HEPATIC STEATOSIS [None]
  - HIRSUTISM [None]
  - INSOMNIA [None]
  - INTERTRIGO [None]
  - IRRITABLE BOWEL SYNDROME [None]
  - LARYNGITIS [None]
  - LEVATOR SYNDROME [None]
  - LYMPHADENOPATHY [None]
  - OEDEMA PERIPHERAL [None]
  - OSTEONECROSIS OF JAW [None]
  - PHARYNGITIS [None]
  - PNEUMONIA [None]
  - RHINITIS [None]
  - SINUSITIS [None]
  - THYROID NEOPLASM [None]
  - TOOTH DISORDER [None]
  - URINARY INCONTINENCE [None]
  - URINARY TRACT INFECTION [None]
